FAERS Safety Report 8221157-0 (Version None)
Quarter: 2012Q1

REPORT INFORMATION
  Report Type: 
  Country: None (occurrence: None)
  Receive Date: 20120320
  Receipt Date: 20120315
  Transmission Date: 20120608
  Serious: Yes (Hospitalization, Other)
  Sender: FDA-Public Use
  Company Number: BR-PFIZER INC-2012065592

PATIENT
  Age: 45 Year
  Sex: Female

DRUGS (3)
  1. ENALAPRIL [Concomitant]
     Indication: HYPERTENSION
     Dosage: UNK
     Dates: start: 20080101
  2. LYRICA [Suspect]
  3. LYRICA [Suspect]
     Indication: PAIN
     Dosage: 75 MG, 2X/DAY
     Route: 048
     Dates: start: 20111212

REACTIONS (3)
  - SPINAL COLUMN INJURY [None]
  - SPINAL FRACTURE [None]
  - PAIN [None]
